FAERS Safety Report 12301291 (Version 10)
Quarter: 2018Q4

REPORT INFORMATION
  Report Type: Report from Study
  Country: US (occurrence: US)
  Receive Date: 20160425
  Receipt Date: 20181227
  Transmission Date: 20190204
  Serious: Yes (Hospitalization, Other)
  Sender: FDA-Public Use
  Company Number: US-SA-2016SA065938

PATIENT
  Age: 56 Year
  Sex: Male

DRUGS (1)
  1. ALEMTUZUMAB [Suspect]
     Active Substance: ALEMTUZUMAB
     Dosage: UNK
     Route: 041
     Dates: start: 201509, end: 2015

REACTIONS (35)
  - Asthenia [Not Recovered/Not Resolved]
  - Musculoskeletal disorder [Unknown]
  - Aphasia [Recovering/Resolving]
  - Gait disturbance [Not Recovered/Not Resolved]
  - Swelling [Not Recovered/Not Resolved]
  - Lethargy [Not Recovered/Not Resolved]
  - Brain oedema [Unknown]
  - Impaired driving ability [Not Recovered/Not Resolved]
  - Confusional state [Not Recovered/Not Resolved]
  - Spinal cord oedema [Unknown]
  - Visual impairment [Not Recovered/Not Resolved]
  - Photophobia [Not Recovered/Not Resolved]
  - Decubitus ulcer [Unknown]
  - Multiple sclerosis relapse [Unknown]
  - Oedema [Not Recovered/Not Resolved]
  - Peripheral swelling [Recovering/Resolving]
  - Pneumonia [Unknown]
  - Cognitive disorder [Not Recovered/Not Resolved]
  - Vision blurred [Not Recovered/Not Resolved]
  - Hypoaesthesia [Not Recovered/Not Resolved]
  - Paraplegia [Unknown]
  - Acute disseminated encephalomyelitis [Not Recovered/Not Resolved]
  - Bedridden [Not Recovered/Not Resolved]
  - Mobility decreased [Not Recovered/Not Resolved]
  - Musculoskeletal pain [Unknown]
  - Hypoaesthesia [Unknown]
  - Hemiparesis [Recovering/Resolving]
  - Demyelination [Unknown]
  - Muscular weakness [Unknown]
  - Headache [Unknown]
  - Speech disorder [Not Recovered/Not Resolved]
  - Condition aggravated [Unknown]
  - Visual impairment [Not Recovered/Not Resolved]
  - Eye movement disorder [Not Recovered/Not Resolved]
  - Dysphagia [Unknown]

NARRATIVE: CASE EVENT DATE: 201512
